FAERS Safety Report 6220239-2 (Version None)
Quarter: 2009Q2

REPORT INFORMATION
  Report Type: 
  Country: None (occurrence: None)
  Receive Date: 20090609
  Receipt Date: 20090526
  Transmission Date: 20091009
  Serious: Yes (Other)
  Sender: FDA-Public Use
  Company Number: US-ELI_LILLY_AND_COMPANY-US200904006526

PATIENT
  Age: 45 Year
  Sex: Female

DRUGS (6)
  1. CYMBALTA [Suspect]
     Indication: DEPRESSION
     Dosage: 120 MG, UNK
     Dates: start: 20080101
  2. CYMBALTA [Suspect]
     Dosage: 1 D/F, UNK
     Dates: end: 20090401
  3. METHOTREXATE [Concomitant]
     Indication: RHEUMATOID ARTHRITIS
     Dates: start: 20090101
  4. CLONOPIN [Concomitant]
  5. PREMARIN [Concomitant]
  6. REMICADE [Concomitant]
     Dates: start: 20090101

REACTIONS (5)
  - AUTONOMIC NERVOUS SYSTEM IMBALANCE [None]
  - DEPRESSED LEVEL OF CONSCIOUSNESS [None]
  - HYPERHIDROSIS [None]
  - HYPERREFLEXIA [None]
  - MUSCLE RIGIDITY [None]
